FAERS Safety Report 14853814 (Version 1)
Quarter: 2018Q2

REPORT INFORMATION
  Report Type: Spontaneous
  Country: US (occurrence: US)
  Receive Date: 20180420
  Receipt Date: 20180420
  Transmission Date: 20180711
  Serious: Yes (Other)
  Sender: FDA-Public Use
  Company Number: None

PATIENT
  Age: 32 Year
  Sex: Female
  Weight: 52.2 kg

DRUGS (4)
  1. MULTIVITAMIN [Concomitant]
     Active Substance: VITAMINS
  2. BABY ASPIRIN [Concomitant]
     Active Substance: ASPIRIN
  3. RETIN-A MICRO [Suspect]
     Active Substance: TRETINOIN
     Indication: SKIN DISCOLOURATION
     Dosage: OTHER FREQUENCY:2-3X/WEEK;?
     Route: 061
     Dates: start: 20170908, end: 20171001
  4. PROBIOTIC [Concomitant]
     Active Substance: PROBIOTICS NOS

REACTIONS (3)
  - Skin burning sensation [None]
  - Acne [None]
  - Skin injury [None]

NARRATIVE: CASE EVENT DATE: 20170908
